FAERS Safety Report 10634034 (Version 1)
Quarter: 2014Q4

REPORT INFORMATION
  Report Type: Spontaneous
  Country: US (occurrence: None)
  Receive Date: 20141203
  Receipt Date: 20141203
  Transmission Date: 20150529
  Serious: Yes (Other)
  Sender: FDA-Public Use
  Company Number: ADR-2014-01439

PATIENT
  Age: 18 Year
  Sex: Female

DRUGS (2)
  1. COMPOUNDED BACLOFEN INTRATHECAL [Suspect]
     Active Substance: BACLOFEN
     Indication: MUSCLE SPASTICITY
  2. LIORESAL [Suspect]
     Active Substance: BACLOFEN

REACTIONS (10)
  - Meningitis [None]
  - Muscle spasticity [None]
  - Device connection issue [None]
  - Wound dehiscence [None]
  - Device kink [None]
  - Device related infection [None]
  - Candida test positive [None]
  - Device breakage [None]
  - Withdrawal syndrome [None]
  - Product contamination [None]
